FAERS Safety Report 24981131 (Version 1)
Quarter: 2025Q1

REPORT INFORMATION
  Report Type: Spontaneous
  Country: DE (occurrence: DE)
  Receive Date: 20250218
  Receipt Date: 20250218
  Transmission Date: 20250409
  Serious: Yes (Hospitalization)
  Sender: SANDOZ
  Company Number: DE-ELI_LILLY_AND_COMPANY-DE202501021493

PATIENT
  Age: 54 Year
  Sex: Female
  Weight: 83 kg

DRUGS (1)
  1. SOMATROPIN [Suspect]
     Active Substance: SOMATROPIN
     Indication: Growth hormone deficiency
     Route: 065

REACTIONS (3)
  - Adrenocortical insufficiency acute [Recovered/Resolved]
  - Adrenocortical insufficiency acute [Recovered/Resolved]
  - Hyperthyroidism [Not Recovered/Not Resolved]

NARRATIVE: CASE EVENT DATE: 20241214
